FAERS Safety Report 12897782 (Version 1)
Quarter: 2016Q4

REPORT INFORMATION
  Report Type: Spontaneous
  Country: KR (occurrence: KR)
  Receive Date: 20161031
  Receipt Date: 20161031
  Transmission Date: 20170207
  Serious: Yes (Other)
  Sender: FDA-Public Use
  Company Number: KR-TEVA-708614USA

PATIENT
  Sex: Female

DRUGS (1)
  1. POSTINOR -1 [Suspect]
     Active Substance: LEVONORGESTREL
     Indication: CONTRACEPTION
     Route: 048
     Dates: start: 201610

REACTIONS (1)
  - Genital haemorrhage [Unknown]

NARRATIVE: CASE EVENT DATE: 201610
